FAERS Safety Report 13325222 (Version 1)
Quarter: 2017Q1

REPORT INFORMATION
  Report Type: Spontaneous
  Country: ES (occurrence: ES)
  Receive Date: 20170310
  Receipt Date: 20170310
  Transmission Date: 20170428
  Serious: Yes (Other)
  Sender: FDA-Public Use
  Company Number: ES-JNJFOC-20170309577

PATIENT
  Age: 59 Year
  Sex: Female

DRUGS (6)
  1. DIAZEPAM. [Concomitant]
     Active Substance: DIAZEPAM
     Indication: PERSISTENT DEPRESSIVE DISORDER
     Route: 048
     Dates: start: 201211
  2. FLUOXETINE HYDROCHLORIDE. [Concomitant]
     Active Substance: FLUOXETINE HYDROCHLORIDE
     Indication: PERSISTENT DEPRESSIVE DISORDER
     Route: 048
     Dates: start: 201304
  3. PANTOPRAZOL CINFA [Concomitant]
     Indication: GASTROINTESTINAL HAEMORRHAGE
     Route: 048
     Dates: start: 201611
  4. CORLENTOR [Concomitant]
     Active Substance: IVABRADINE HYDROCHLORIDE
     Indication: TACHYCARDIA
     Route: 048
     Dates: start: 201309
  5. INVOKANA [Suspect]
     Active Substance: CANAGLIFLOZIN
     Indication: TYPE 2 DIABETES MELLITUS
     Route: 048
     Dates: start: 20170203, end: 20170216
  6. LISINOPRIL/HYDROCHLOORTHIAZIDE [Concomitant]
     Active Substance: HYDROCHLOROTHIAZIDE\LISINOPRIL
     Indication: HYPERTENSION
     Dosage: DOSE: 20/12.5 MG
     Route: 048
     Dates: start: 201309

REACTIONS (1)
  - Hepatitis cholestatic [Recovering/Resolving]

NARRATIVE: CASE EVENT DATE: 20170216
